FAERS Safety Report 5611158-0 (Version None)
Quarter: 2008Q1

REPORT INFORMATION
  Report Type: 
  Country: None (occurrence: None)
  Receive Date: 20080129
  Receipt Date: 20080121
  Transmission Date: 20080703
  Serious: Yes (Other)
  Sender: FDA-Public Use
  Company Number: 2008-00340

PATIENT
  Sex: Female

DRUGS (1)
  1. CARISOPRODOL [Suspect]
     Indication: BACK PAIN
     Dosage: 500-1000MG, DAILY, ORAL
     Route: 048
     Dates: start: 20030101

REACTIONS (3)
  - DRUG DEPENDENCE [None]
  - LOSS OF CONSCIOUSNESS [None]
  - TREMOR [None]
